FAERS Safety Report 6762405-3 (Version None)
Quarter: 2010Q2

REPORT INFORMATION
  Report Type: 
  Country: None (occurrence: None)
  Receive Date: 20100609
  Receipt Date: 20100602
  Transmission Date: 20101027
  Serious: Yes (Other)
  Sender: FDA-Public Use
  Company Number: US-ROCHE-701260

PATIENT
  Sex: Female
  Weight: 133.3 kg

DRUGS (18)
  1. ACTEMRA [Suspect]
     Indication: RHEUMATOID ARTHRITIS
     Dosage: FORM: INFUSION; BATCH B0004B01: EXPIRY DATE: SEPT 2011; BATCH B0012B01: EXPIRY DATE: 2012
     Route: 042
     Dates: start: 20100420, end: 20100420
  2. TORADOL [Suspect]
     Indication: RHEUMATOID ARTHRITIS
     Route: 065
     Dates: start: 20100420
  3. PHENERGAN [Suspect]
     Dosage: OTHER INDICATION NAUSEA
     Route: 065
     Dates: start: 20100420
  4. DEPO-MEDROL [Suspect]
     Indication: FIBROMYALGIA
     Route: 065
     Dates: start: 20100420
  5. OXYCODONE [Concomitant]
     Indication: PAIN
  6. ROXICODONE [Concomitant]
     Indication: PAIN
  7. ZANAFLEX [Concomitant]
  8. CYMBALTA [Concomitant]
     Indication: DEPRESSION
     Dosage: OTHER INDICATION: PAIN
  9. XANAX [Concomitant]
     Indication: ANXIETY
  10. LEXAPRO [Concomitant]
     Indication: DEPRESSION
  11. PROCARDIA XL [Concomitant]
     Indication: HYPERTENSION
  12. LISINOPRIL VS HCTZ [Concomitant]
     Indication: HYPERTENSION
     Dosage: STRENGTH: 20/25 MG
  13. MIRAPEX [Concomitant]
  14. TOPAMAX [Concomitant]
     Indication: MIGRAINE
  15. MAXALT [Concomitant]
     Indication: MIGRAINE
     Dosage: FREQUENCY: AS NEEDED
  16. FROVA [Concomitant]
     Indication: MIGRAINE
     Dosage: FREQUENCY: AS NEEDED
  17. NEXIUM [Concomitant]
     Indication: GASTRIC DISORDER
  18. YASMIN [Concomitant]

REACTIONS (11)
  - BIPOLAR DISORDER [None]
  - ERYTHEMA [None]
  - FIBROMYALGIA [None]
  - FUNGAL INFECTION [None]
  - HEADACHE [None]
  - JOINT EFFUSION [None]
  - NAUSEA [None]
  - PAIN [None]
  - PERIPHERAL VASCULAR DISORDER [None]
  - PRURITUS [None]
  - VOMITING [None]
